FAERS Safety Report 5307827-2 (Version None)
Quarter: 2007Q2

REPORT INFORMATION
  Report Type: 
  Country: None (occurrence: None)
  Receive Date: 20070425
  Receipt Date: 20070413
  Transmission Date: 20071010
  Serious: Yes (Other)
  Sender: FDA-Public Use
  Company Number: GBWYE456413APR07

PATIENT
  Age: 46 Year
  Sex: Female

DRUGS (2)
  1. ENBREL [Suspect]
     Indication: DRUG USE FOR UNKNOWN INDICATION
     Dosage: LYOPHILIZED FORM
     Dates: start: 20060401, end: 20070401
  2. ENBREL [Suspect]
     Route: 058
     Dates: start: 20070412

REACTIONS (4)
  - ABDOMINAL DISTENSION [None]
  - INJECTION SITE PAIN [None]
  - INJECTION SITE RASH [None]
  - PAIN [None]
